FAERS Safety Report 8895090 (Version 1)
Quarter: 2012Q4

REPORT INFORMATION
  Report Type: 
  Country: US (occurrence: US)
  Receive Date: 20121107
  Receipt Date: 20121107
  Transmission Date: 20130627
  Serious: No
  Sender: FDA-Public Use
  Company Number: US-AMGEN-USASP2011061670

PATIENT
  Sex: Male
  Weight: 113.38 kg

DRUGS (4)
  1. ENBREL [Suspect]
     Indication: PSORIATIC ARTHROPATHY
     Dosage: 50 mg, qwk
     Dates: start: 20111118
  2. NORCO [Concomitant]
     Dosage: 10 mg, tid
     Route: 048
     Dates: start: 20120112
  3. MEDROL                             /00049601/ [Concomitant]
     Dosage: 4 mg, qd
     Route: 048
     Dates: start: 20111128
  4. ADVIL                              /00044201/ [Concomitant]
     Dosage: UNK
     Route: 048
     Dates: start: 20110303

REACTIONS (2)
  - Cough [Not Recovered/Not Resolved]
  - Sinus congestion [Not Recovered/Not Resolved]
